FAERS Safety Report 9251355 (Version 1)
Quarter: 2013Q1

REPORT INFORMATION
  Report Type: Spontaneous
  Country: US (occurrence: None)
  Receive Date: 20130305
  Receipt Date: 20130305
  Transmission Date: 20140127
  Serious: Yes (Other)
  Sender: FDA-Public Use
  Company Number: 163-21880-12090369

PATIENT
  Age: 44 Year
  Sex: Female

DRUGS (10)
  1. REVLIMID [Suspect]
     Indication: PLASMA CELL MYELOMA
     Route: 048
     Dates: start: 20120608
  2. CALCIUM (CALCIUM) [Concomitant]
  3. CILOXAN [Concomitant]
  4. FAMOTIDINE (FAMOTIDINE) [Concomitant]
  5. KLOR-CON (POTASSIUM CHLORIDE) [Concomitant]
  6. LEVOTHYROXINE (LEVOTHYROXINE) [Concomitant]
  7. MS CONTIN [Concomitant]
  8. PRAVASTATIN (PRAVASTATIN) [Concomitant]
  9. TRIAMTERENE/HCTZ (DYAZIDE) [Concomitant]
  10. VITAMIN D3 (COLECALCIFEROL) [Concomitant]

REACTIONS (1)
  - Rash pruritic [None]
